FAERS Safety Report 17289127 (Version 18)
Quarter: 2020Q2

REPORT INFORMATION
  Report Type: Report from Study
  Country: FR (occurrence: FR)
  Receive Date: 20200120
  Receipt Date: 20200630
  Transmission Date: 20200713
  Serious: Yes (Hospitalization)
  Sender: FDA-Public Use
  Company Number: FR-EISAI MEDICAL RESEARCH-EC-2020-068684

PATIENT
  Age: 73 Year
  Sex: Male
  Weight: 74.4 kg

DRUGS (13)
  1. LERCAN [Concomitant]
     Active Substance: LERCANIDIPINE
     Dates: start: 20190805, end: 20200130
  2. PEMBROLIZUMAB. [Suspect]
     Active Substance: PEMBROLIZUMAB
     Indication: HEPATOCELLULAR CARCINOMA
     Dosage: DOSE UNKNOWN
     Route: 041
     Dates: start: 20190627, end: 20191212
  3. POTASSIUM CHLORIDE. [Concomitant]
     Active Substance: POTASSIUM CHLORIDE
     Dates: start: 20191010, end: 20200116
  4. ASPIRIN PROTECT [Concomitant]
     Active Substance: ASPIRIN
     Dates: start: 20180101, end: 20200116
  5. LASILIX [Concomitant]
     Active Substance: FUROSEMIDE
     Dates: start: 20190801, end: 20200109
  6. LOSARTAN POTASSIUM. [Concomitant]
     Active Substance: LOSARTAN POTASSIUM
     Dates: start: 20190801, end: 20200130
  7. LENVATINIB [Suspect]
     Active Substance: LENVATINIB
     Route: 048
     Dates: start: 20200111, end: 20200111
  8. LEVOTHYROX [Concomitant]
     Active Substance: LEVOTHYROXINE
     Dates: start: 19990101, end: 20200116
  9. ALDACTONE [Concomitant]
     Active Substance: SPIRONOLACTONE
     Dates: start: 201901, end: 20200109
  10. DEXERYL CREAM [Concomitant]
     Active Substance: GLYCERIN\MINERAL OIL\PETROLATUM
     Dates: start: 20200102, end: 20200113
  11. INEXIUM [Concomitant]
     Active Substance: ESOMEPRAZOLE
     Dates: start: 20200102, end: 20200113
  12. LENVATINIB [Suspect]
     Active Substance: LENVATINIB
     Indication: HEPATOCELLULAR CARCINOMA
     Dosage: STARTING DOSE AT 12 MILLIGRAM (BODY WEIGHT (BW) GREATER THAN OR EQUAL TO 60 KG), FLUCTUATED DOSES
     Route: 048
     Dates: start: 20190627, end: 20200110
  13. PEMBROLIZUMAB. [Suspect]
     Active Substance: PEMBROLIZUMAB
     Dosage: DOSE UNKNOWN
     Route: 041
     Dates: start: 20200102, end: 20200102

REACTIONS (2)
  - Gastric haemorrhage [Recovered/Resolved]
  - Anaemia [Recovered/Resolved]

NARRATIVE: CASE EVENT DATE: 20200113
